FAERS Safety Report 4699756-2 (Version None)
Quarter: 2005Q2

REPORT INFORMATION
  Report Type: 
  Country: None (occurrence: None)
  Receive Date: 20050623
  Receipt Date: 20050610
  Transmission Date: 20051028
  Serious: Yes (Other)
  Sender: FDA-Public Use
  Company Number: 2005086669

PATIENT
  Age: 5 Year
  Sex: Male

DRUGS (1)
  1. VISINE II EYE DROPS [Suspect]
     Indication: ACCIDENTAL EXPOSURE
     Dosage: UNSPECIFIED AMOUNT ONCE, ORAL
     Route: 048

REACTIONS (2)
  - ACCIDENTAL EXPOSURE [None]
  - VOMITING [None]
